FAERS Safety Report 19872882 (Version 2)
Quarter: 2021Q3

REPORT INFORMATION
  Report Type: Spontaneous
  Country: US (occurrence: US)
  Receive Date: 20210922
  Receipt Date: 20210930
  Transmission Date: 20211014
  Serious: No
  Sender: FDA-Public Use
  Company Number: US-GILEAD-2021-0549582

PATIENT
  Age: 41 Year

DRUGS (3)
  1. MELATONIN [Concomitant]
     Active Substance: MELATONIN
  2. DESCOVY [Suspect]
     Active Substance: EMTRICITABINE\TENOFOVIR ALAFENAMIDE FUMARATE
     Indication: PROPHYLAXIS AGAINST HIV INFECTION
     Route: 065
  3. TESTOSTERONE. [Concomitant]
     Active Substance: TESTOSTERONE

REACTIONS (2)
  - Muscular weakness [Unknown]
  - Blood creatine phosphokinase increased [Recovered/Resolved]
